FAERS Safety Report 7959456-X (Version None)
Quarter: 2011Q4

REPORT INFORMATION
  Report Type: 
  Country: None (occurrence: None)
  Receive Date: 20111206
  Receipt Date: 20111202
  Transmission Date: 20120403
  Serious: No
  Sender: FDA-Public Use
  Company Number: US-PFIZER INC-2011284907

PATIENT
  Sex: Male
  Weight: 86.621 kg

DRUGS (8)
  1. LYRICA [Suspect]
     Indication: FIBROMYALGIA
  2. LYRICA [Suspect]
     Indication: NEURALGIA
     Dosage: 150 MG, UNK
     Route: 048
     Dates: start: 20050101
  3. LYRICA [Suspect]
     Indication: PARAESTHESIA
     Dosage: 225 MG, 3X/DAY
     Route: 048
     Dates: start: 20060101
  4. LYRICA [Suspect]
     Indication: NEUROPATHY PERIPHERAL
  5. PROTONIX [Concomitant]
     Indication: GASTROOESOPHAGEAL REFLUX DISEASE
     Dosage: UNK
  6. RANITIDINE [Concomitant]
     Indication: GASTROOESOPHAGEAL REFLUX DISEASE
     Dosage: UNK
  7. TIZANIDINE [Concomitant]
     Indication: MUSCLE SPASMS
     Dosage: UNK
  8. DOMPERIDONE [Concomitant]
     Dosage: UNK

REACTIONS (3)
  - PAIN [None]
  - DYSGEUSIA [None]
  - DRUG INEFFECTIVE [None]
